FAERS Safety Report 4711332-1 (Version None)
Quarter: 2005Q3

REPORT INFORMATION
  Report Type: 
  Country: None (occurrence: None)
  Receive Date: 20050711
  Receipt Date: 20050706
  Transmission Date: 20060218
  Serious: Yes (Death, Life-Threatening)
  Sender: FDA-Public Use
  Company Number: DE-MERCK-0507DEU00052

PATIENT
  Age: 70 Year
  Sex: Female

DRUGS (2)
  1. FOSAMAX [Suspect]
     Indication: OSTEOPOROSIS
     Route: 048
     Dates: start: 20050530, end: 20050620
  2. FOSAMAX [Suspect]
     Indication: MULTIPLE FRACTURES
     Route: 048
     Dates: start: 20050530, end: 20050620

REACTIONS (1)
  - GASTRIC HAEMORRHAGE [None]
